FAERS Safety Report 12421858 (Version 1)
Quarter: 2016Q2

REPORT INFORMATION
  Report Type: Report from Study
  Country: KR (occurrence: KR)
  Receive Date: 20160531
  Receipt Date: 20160531
  Transmission Date: 20160815
  Serious: Yes (Other)
  Sender: FDA-Public Use
  Company Number: KR-009507513-1605KOR013770

PATIENT

DRUGS (5)
  1. NICARDIPINE HYDROCHLORIDE. [Concomitant]
     Active Substance: NICARDIPINE HYDROCHLORIDE
     Dosage: 20 MICROGRAM PER KILOGRAM (IN 3 ML SALINE), ONCE
     Route: 040
  2. GLYCOPYRROLATE. [Concomitant]
     Active Substance: GLYCOPYRROLATE
     Dosage: 0.2 MG, ONCE
     Route: 030
  3. PROPOFOL. [Concomitant]
     Active Substance: PROPOFOL
     Indication: GENERAL ANAESTHESIA
     Dosage: 2 MG/KG, GIVEN FOR 1 MINUTE AND 15 SECONDS
  4. ROCURONIUM BROMIDE. [Suspect]
     Active Substance: ROCURONIUM BROMIDE
     Indication: NEUROMUSCULAR BLOCKADE
     Dosage: 0.6 MG/KG, ADMINISTERED FOR 10 SECONDS
  5. MIDAZOLAM [Concomitant]
     Active Substance: MIDAZOLAM\MIDAZOLAM HYDROCHLORIDE
     Dosage: 2 MG, ONCE
     Route: 030

REACTIONS (2)
  - Drug ineffective [Unknown]
  - Endotracheal intubation complication [Unknown]
